FAERS Safety Report 8268375-3 (Version None)
Quarter: 2012Q2

REPORT INFORMATION
  Report Type: 
  Country: None (occurrence: None)
  Receive Date: 20120409
  Receipt Date: 20120402
  Transmission Date: 20120825
  Serious: Yes (Other)
  Sender: FDA-Public Use
  Company Number: DE-UCBSA-054587

PATIENT
  Age: 71 Year
  Sex: Male

DRUGS (2)
  1. MADOPAR [Interacting]
  2. NEUPRO [Suspect]
     Indication: PARKINSON'S DISEASE
     Dates: start: 20120301

REACTIONS (4)
  - TREMOR [None]
  - MUSCULOSKELETAL STIFFNESS [None]
  - PARALYSIS [None]
  - DRUG INTERACTION [None]
